FAERS Safety Report 9584010 (Version 1)
Quarter: 2013Q4

REPORT INFORMATION
  Report Type: Spontaneous
  Country: US (occurrence: US)
  Receive Date: 20131002
  Receipt Date: 20131002
  Transmission Date: 20140711
  Serious: No
  Sender: FDA-Public Use
  Company Number: US-AMGEN-USASP2013051220

PATIENT
  Age: 63 Year
  Sex: Female
  Weight: 92.97 kg

DRUGS (8)
  1. ENBREL [Suspect]
     Indication: PRODUCT USED FOR UNKNOWN INDICATION
     Dosage: 50 MG, QWK
     Route: 058
  2. ZOLOFT [Concomitant]
     Dosage: 100 MG, UNK
  3. METHOTREXATE [Concomitant]
     Dosage: 2.5 MG, UNK
  4. SINUS                              /00446801/ [Concomitant]
     Dosage: UNK
  5. ALLERGY                            /00000402/ [Concomitant]
     Dosage: 25 MG, UNK
  6. OMEGA 3                            /01334101/ [Concomitant]
     Dosage: 1000 MG, UNK
  7. ASPIRIN [Concomitant]
     Dosage: 81 MG, UNK
  8. MULTIVITAMINS, PLAIN [Concomitant]
     Dosage: UNK

REACTIONS (2)
  - Psoriasis [Unknown]
  - Oral herpes [Unknown]
